FAERS Safety Report 9682374 (Version 1)
Quarter: 2013Q4

REPORT INFORMATION
  Report Type: Spontaneous
  Country: US (occurrence: US)
  Receive Date: 20131112
  Receipt Date: 20131112
  Transmission Date: 20140711
  Serious: No
  Sender: FDA-Public Use
  Company Number: US-BIOGENIDEC-2013BI104906

PATIENT
  Age: 51 Year
  Sex: Female

DRUGS (2)
  1. AVONEX [Suspect]
     Indication: MULTIPLE SCLEROSIS
     Route: 030
     Dates: start: 20071201
  2. AVONEX [Suspect]
     Indication: MULTIPLE SCLEROSIS
     Dates: start: 201310

REACTIONS (4)
  - Local swelling [Not Recovered/Not Resolved]
  - Injury associated with device [Recovered/Resolved]
  - Drug dose omission [Recovered/Resolved]
  - Pain in extremity [Not Recovered/Not Resolved]
